FAERS Safety Report 5724624-4 (Version None)
Quarter: 2008Q2

REPORT INFORMATION
  Report Type: 
  Country: None (occurrence: None)
  Receive Date: 20080430
  Receipt Date: 20080430
  Transmission Date: 20081010
  Serious: No
  Sender: FDA-Public Use
  Company Number: None

PATIENT
  Age: 42 Year
  Sex: Female
  Weight: 101.3 kg

DRUGS (6)
  1. ISOVUE-300 [Suspect]
     Indication: COMPUTERISED TOMOGRAM
     Dosage: 130 ML AT 2 ML/SEC
     Dates: start: 20080510
  2. FLUORESCEIN 500MG IVP [Suspect]
     Dosage: 500 MG IV
     Route: 042
     Dates: start: 20080510
  3. IBUPROFEN TABLETS [Concomitant]
  4. PREDNISONE TAB [Concomitant]
  5. RHINOCORT [Concomitant]
  6. CYCLOGYL [Concomitant]

REACTIONS (3)
  - NO REACTION ON PREVIOUS EXPOSURE TO DRUG [None]
  - PRURITUS [None]
  - RASH [None]
